FAERS Safety Report 12507408 (Version 1)
Quarter: 2016Q2

REPORT INFORMATION
  Report Type: Spontaneous
  Country: DZ (occurrence: DZ)
  Receive Date: 20160629
  Receipt Date: 20160629
  Transmission Date: 20160815
  Serious: Yes (Death, Life-Threatening, Hospitalization, Disabling)
  Sender: FDA-Public Use
  Company Number: DZ-ROCHE-1774790

PATIENT
  Age: 63 Year
  Sex: Male
  Weight: 79 kg

DRUGS (4)
  1. PLAVIX [Concomitant]
     Active Substance: CLOPIDOGREL BISULFATE
     Indication: ACUTE CORONARY SYNDROME
     Route: 048
  2. ASPEGIC [Concomitant]
     Active Substance: ASPIRIN DL-LYSINE
     Indication: ACUTE CORONARY SYNDROME
     Dosage: (250 MG 1 IN 1 D)
     Route: 048
  3. LOVENOX [Concomitant]
     Active Substance: ENOXAPARIN SODIUM
     Indication: ACUTE CORONARY SYNDROME
     Route: 058
  4. METALYSE [Suspect]
     Active Substance: TENECTEPLASE
     Indication: ACUTE CORONARY SYNDROME
     Dosage: DAILY DOSE: 8000 U (8000 U,1 IN 1 ONCE)
     Route: 042
     Dates: start: 20160602, end: 20160602

REACTIONS (2)
  - Death [Fatal]
  - Cerebral haematoma [Not Recovered/Not Resolved]

NARRATIVE: CASE EVENT DATE: 20160603
